FAERS Safety Report 7481396-3 (Version None)
Quarter: 2011Q2

REPORT INFORMATION
  Report Type: 
  Country: None (occurrence: None)
  Receive Date: 20110516
  Receipt Date: 20110510
  Transmission Date: 20111010
  Serious: Yes (Death, Hospitalization, Other)
  Sender: FDA-Public Use
  Company Number: US-ELI_LILLY_AND_COMPANY-US201103000869

PATIENT
  Sex: Male

DRUGS (3)
  1. GEMZAR [Suspect]
     Indication: PANCREATIC CARCINOMA
     Dosage: UNK UNK, OTHER
     Route: 042
     Dates: start: 20100408, end: 20100513
  2. VECTIBIX [Concomitant]
  3. TARCEVA [Concomitant]

REACTIONS (2)
  - NEOPLASM MALIGNANT [None]
  - INTESTINAL PERFORATION [None]
